FAERS Safety Report 8582938-7 (Version None)
Quarter: 2012Q2

REPORT INFORMATION
  Report Type: 
  Country: None (occurrence: None)
  Receive Date: 20120423
  Receipt Date: 20080515
  Transmission Date: 20120825
  Serious: Yes (Other)
  Sender: FDA-Public Use
  Company Number: PHEH2008US04641

PATIENT

DRUGS (1)
  1. FORADIL [Suspect]
     Indication: PULMONARY FUNCTION TEST
     Dosage: , INHALATION
     Route: 055

REACTIONS (3)
  - FEELING JITTERY [None]
  - TREMOR [None]
  - DIZZINESS [None]
